FAERS Safety Report 20776988 (Version 1)
Quarter: 2022Q2

REPORT INFORMATION
  Report Type: Spontaneous
  Country: US (occurrence: US)
  Receive Date: 20220502
  Receipt Date: 20220502
  Transmission Date: 20220721
  Serious: Yes (Other)
  Sender: FDA-Public Use
  Company Number: US-GILEAD-2022-0579937

PATIENT
  Sex: Female

DRUGS (3)
  1. TRODELVY [Suspect]
     Active Substance: SACITUZUMAB GOVITECAN-HZIY
     Indication: Triple negative breast cancer
     Dosage: STARTED ABOUT 5 MONTHS AGO, SPECIFIC DATE NOT REPORTED
     Route: 065
  2. TRODELVY [Suspect]
     Active Substance: SACITUZUMAB GOVITECAN-HZIY
     Dosage: REDUCED TO 7.5MG
     Route: 065
  3. TRODELVY [Suspect]
     Active Substance: SACITUZUMAB GOVITECAN-HZIY
     Dosage: FURTHER REDUCED TO 5 MG, CURRENTLY ON FIFTH CYCLE,
     Route: 065

REACTIONS (2)
  - Neutropenia [Not Recovered/Not Resolved]
  - Electrolyte imbalance [Not Recovered/Not Resolved]
